FAERS Safety Report 17872487 (Version 2)
Quarter: 2020Q2

REPORT INFORMATION
  Report Type: Spontaneous
  Country: US (occurrence: US)
  Receive Date: 20200608
  Receipt Date: 20200611
  Transmission Date: 20200714
  Serious: Yes (Death)
  Sender: FDA-Public Use
  Company Number: US-ROCHE-2616409

PATIENT
  Age: 63 Year
  Sex: Female
  Weight: 94 kg

DRUGS (2)
  1. LOVENOX [Concomitant]
     Active Substance: ENOXAPARIN SODIUM
  2. ACTEMRA [Suspect]
     Active Substance: TOCILIZUMAB
     Indication: COVID-19 PNEUMONIA
     Dosage: ONCE
     Route: 042
     Dates: start: 20200407, end: 20200407

REACTIONS (4)
  - Cardio-respiratory arrest [Fatal]
  - Off label use [Unknown]
  - COVID-19 [Fatal]
  - Intentional product use issue [Unknown]
